FAERS Safety Report 7914493-6 (Version None)
Quarter: 2011Q4

REPORT INFORMATION
  Report Type: 
  Country: None (occurrence: None)
  Receive Date: 20111115
  Receipt Date: 20111109
  Transmission Date: 20120403
  Serious: Yes (Hospitalization, Other)
  Sender: FDA-Public Use
  Company Number: US-CELGENEUS-163-21880-11111472

PATIENT
  Sex: Male
  Weight: 103.06 kg

DRUGS (16)
  1. ZOFRAN [Concomitant]
     Route: 065
  2. CRESTOR [Concomitant]
     Route: 065
  3. POTASSIUM CHLORIDE [Concomitant]
     Route: 065
  4. LEXAPRO [Concomitant]
     Route: 065
  5. COMPAZINE [Concomitant]
     Route: 065
  6. REVLIMID [Suspect]
     Indication: MULTIPLE MYELOMA
     Dosage: 5 MILLIGRAM
     Route: 048
     Dates: start: 20110701
  7. REVLIMID [Suspect]
     Dosage: 10 MILLIGRAM
     Route: 048
     Dates: start: 20111001, end: 20111019
  8. VELCADE [Concomitant]
     Route: 065
  9. DECADRON [Concomitant]
     Route: 065
  10. TOPROL-XL [Concomitant]
     Route: 065
  11. FLUCONAZOLE [Concomitant]
     Route: 065
  12. ACYCLOVIR [Concomitant]
     Route: 065
  13. ALOXI [Concomitant]
     Route: 065
  14. ATIVAN [Concomitant]
     Route: 065
  15. LEVOTHYROXINE SODIUM [Concomitant]
     Route: 065
  16. FUROSEMIDE [Concomitant]
     Route: 065

REACTIONS (4)
  - CONVULSION [None]
  - NEOPLASM PROGRESSION [None]
  - THROMBOSIS [None]
  - MULTIPLE MYELOMA [None]
